FAERS Safety Report 8760265 (Version 1)
Quarter: 2012Q4

REPORT INFORMATION
  Report Type: 
  Country: GB (occurrence: GB)
  Receive Date: 20120830
  Receipt Date: 20120830
  Transmission Date: 20130627
  Serious: Yes (Hospitalization, Other)
  Sender: FDA-Public Use
  Company Number: GB-009507513-1208GBR007841

PATIENT

DRUGS (2)
  1. IMPLANON [Suspect]
     Indication: CONTRACEPTION
     Dosage: UNK
     Route: 059
  2. CARBAMAZEPINE [Interacting]
     Indication: CONVULSION
     Dosage: UNK

REACTIONS (4)
  - Abortion [Recovered/Resolved]
  - Drug interaction [Recovered/Resolved]
  - Ectopic pregnancy [Recovered/Resolved]
  - Drug ineffective [Recovered/Resolved]
